FAERS Safety Report 6334299-1 (Version None)
Quarter: 2009Q3

REPORT INFORMATION
  Report Type: 
  Country: None (occurrence: None)
  Receive Date: 20090829
  Receipt Date: 20090805
  Transmission Date: 20100115
  Serious: No
  Sender: FDA-Public Use
  Company Number: US-ABBOTT-09P-163-0589782-00

PATIENT
  Sex: Male
  Weight: 74.91 kg

DRUGS (13)
  1. SIMCOR [Suspect]
     Indication: DRUG USE FOR UNKNOWN INDICATION
     Dosage: 500/20 MILLIGRAMS EVERY NIGHT
     Dates: start: 20090801
  2. OMEPRAZOLE [Concomitant]
     Indication: DRUG USE FOR UNKNOWN INDICATION
  3. VESICAR [Concomitant]
     Indication: DRUG USE FOR UNKNOWN INDICATION
  4. ZOLPIDEM [Concomitant]
     Indication: DRUG USE FOR UNKNOWN INDICATION
  5. AVANDARYL [Concomitant]
     Indication: DRUG USE FOR UNKNOWN INDICATION
  6. LISINOPRIL [Concomitant]
     Indication: DRUG USE FOR UNKNOWN INDICATION
  7. ASPIRIN [Concomitant]
     Indication: DRUG USE FOR UNKNOWN INDICATION
  8. HYDROCHLOROTHIAZIDE [Concomitant]
     Indication: DRUG USE FOR UNKNOWN INDICATION
  9. VIT E [Concomitant]
     Indication: DRUG USE FOR UNKNOWN INDICATION
  10. FISH OIL [Concomitant]
     Indication: DRUG USE FOR UNKNOWN INDICATION
  11. IRON [Concomitant]
     Indication: DRUG USE FOR UNKNOWN INDICATION
  12. CINNAMON [Concomitant]
     Indication: DRUG USE FOR UNKNOWN INDICATION
  13. MULTI-VITAMIN [Concomitant]
     Indication: DRUG USE FOR UNKNOWN INDICATION

REACTIONS (4)
  - ERYTHEMA [None]
  - PARAESTHESIA [None]
  - PRURITUS [None]
  - URTICARIA [None]
